FAERS Safety Report 23127678 (Version 1)
Quarter: 2023Q4

REPORT INFORMATION
  Report Type: Spontaneous
  Country: US (occurrence: US)
  Receive Date: 20231031
  Receipt Date: 20231031
  Transmission Date: 20240110
  Serious: Yes (Disabling, Other)
  Sender: FDA-Public Use
  Company Number: US-ALKEM LABORATORIES LIMITED-US-ALKEM-2023-13031

PATIENT

DRUGS (1)
  1. MORPHINE SULFATE [Suspect]
     Active Substance: MORPHINE SULFATE
     Indication: Product used for unknown indication
     Dosage: 120 MILLIGRAM
     Route: 048

REACTIONS (4)
  - Deafness neurosensory [Unknown]
  - Renal impairment [Unknown]
  - Intentional product misuse [Unknown]
  - Overdose [Unknown]
